FAERS Safety Report 5132749-X (Version None)
Quarter: 2006Q4

REPORT INFORMATION
  Report Type: 
  Country: None (occurrence: None)
  Receive Date: 20061017
  Receipt Date: 20061003
  Transmission Date: 20070319
  Serious: Yes (Other)
  Sender: FDA-Public Use
  Company Number: 14921

PATIENT
  Age: 50 Year
  Sex: Male

DRUGS (2)
  1. VINCRISTINE [Suspect]
     Indication: NON-HODGKIN'S LYMPHOMA
     Dosage: 2 MG PER_CYCLE
  2. 'COCKTAIL' OF PRODUCTS [Concomitant]

REACTIONS (2)
  - DEAFNESS [None]
  - TINNITUS [None]
